FAERS Safety Report 4426342-1 (Version None)
Quarter: 2004Q3

REPORT INFORMATION
  Report Type: 
  Country: None (occurrence: None)
  Receive Date: 20040810
  Receipt Date: 20040727
  Transmission Date: 20050211
  Serious: Yes (Disabling)
  Sender: FDA-Public Use
  Company Number: 02100-JPN-04-0050

PATIENT
  Age: 83 Year
  Sex: Female

DRUGS (7)
  1. CILOSTAZOL [Suspect]
     Indication: ANGINA PECTORIS
     Dosage: 200 MG ORAL
     Route: 048
     Dates: start: 19980101, end: 20010804
  2. ASPIRIN [Suspect]
     Indication: ANGINA PECTORIS
     Dosage: 162 MG ORAL
     Route: 048
     Dates: start: 19980101, end: 20010804
  3. FAMOTIDINE [Concomitant]
  4. ISOSORBIDE MONONITRATE [Concomitant]
  5. METOPROLOL TARTRATE [Concomitant]
  6. CAPTOPRIL [Concomitant]
  7. MAGNESIUM OXIDE [Concomitant]

REACTIONS (5)
  - ASTHENIA [None]
  - BACK PAIN [None]
  - DIFFICULTY IN WALKING [None]
  - EXTRADURAL HAEMATOMA [None]
  - PARALYSIS FLACCID [None]
